FAERS Safety Report 7788482-9 (Version None)
Quarter: 2011Q3

REPORT INFORMATION
  Report Type: 
  Country: None (occurrence: None)
  Receive Date: 20110930
  Receipt Date: 20110923
  Transmission Date: 20111222
  Serious: Yes (Other)
  Sender: FDA-Public Use
  Company Number: US-AMGEN-USASP2011049337

PATIENT
  Sex: Female

DRUGS (2)
  1. ENBREL [Suspect]
     Indication: RHEUMATOID ARTHRITIS
     Dosage: 50 MG, QWK
     Dates: start: 20021201
  2. METHOTREXATE [Concomitant]
     Dosage: 1 MG, QWK
     Dates: start: 20020101

REACTIONS (8)
  - INSOMNIA [None]
  - FATIGUE [None]
  - WEIGHT DECREASED [None]
  - DEPRESSION [None]
  - ROTATOR CUFF SYNDROME [None]
  - ANXIETY [None]
  - FALL [None]
  - DECREASED APPETITE [None]
